FAERS Safety Report 18344893 (Version 1)
Quarter: 2020Q4

REPORT INFORMATION
  Report Type: Spontaneous
  Country: US (occurrence: US)
  Receive Date: 20201005
  Receipt Date: 20201005
  Transmission Date: 20210114
  Serious: Yes (Disabling, Other)
  Sender: FDA-Public Use
  Company Number: US-PURDUE-USA-2020-0168318

PATIENT
  Sex: Male

DRUGS (4)
  1. OXYCODONE/ ACETAMINOPHEN TABLETS [Suspect]
     Active Substance: ACETAMINOPHEN\OXYCODONE HYDROCHLORIDE
     Indication: PRODUCT USED FOR UNKNOWN INDICATION
     Route: 048
  2. HYDROCODONE BITARTRATE AND ACETAMINOPHEN [Suspect]
     Active Substance: ACETAMINOPHEN\HYDROCODONE BITARTRATE
     Indication: PRODUCT USED FOR UNKNOWN INDICATION
     Dosage: UNK
     Route: 048
     Dates: start: 2011, end: 2017
  3. PERCOCET                           /00446701/ [Suspect]
     Active Substance: ACETAMINOPHEN\OXYCODONE HYDROCHLORIDE\OXYCODONE TEREPHTHALATE
     Indication: PRODUCT USED FOR UNKNOWN INDICATION
     Route: 065
  4. TRAMADOL. [Suspect]
     Active Substance: TRAMADOL
     Indication: BACK PAIN
     Dosage: 60 MG, TID
     Route: 048
     Dates: start: 2009, end: 2011

REACTIONS (16)
  - Drug abuse [Unknown]
  - Bipolar disorder [Unknown]
  - Anxiety [Unknown]
  - Emotional distress [Unknown]
  - Overdose [Unknown]
  - Suicidal ideation [Unknown]
  - Insomnia [Unknown]
  - Aggression [Unknown]
  - Antisocial behaviour [Unknown]
  - Weight decreased [Unknown]
  - Pain [Unknown]
  - Drug dependence [Unknown]
  - Withdrawal syndrome [Unknown]
  - Learning disability [Unknown]
  - Depression [Unknown]
  - Apathy [Unknown]
